FAERS Safety Report 5141448-X (Version None)
Quarter: 2006Q4

REPORT INFORMATION
  Report Type: 
  Country: None (occurrence: None)
  Receive Date: 20061030
  Receipt Date: 20061030
  Transmission Date: 20070319
  Serious: Yes (Other)
  Sender: FDA-Public Use
  Company Number: None

PATIENT
  Age: 40 Year
  Sex: Male
  Weight: 74.8435 kg

DRUGS (2)
  1. LEVAQUIN [Suspect]
     Indication: PROSTATE INFECTION
     Dosage: 500 MG 1 X DAILY PO
     Route: 048
     Dates: start: 20060804, end: 20060821
  2. LEVAQUIN [Suspect]
     Indication: PROSTATITIS
     Dosage: 500 MG 1 X DAILY PO
     Route: 048
     Dates: start: 20060804, end: 20060821

REACTIONS (2)
  - ACNE [None]
  - OILY SKIN [None]
